FAERS Safety Report 9388995 (Version 1)
Quarter: 2013Q3

REPORT INFORMATION
  Report Type: Spontaneous
  Country: CH (occurrence: CH)
  Receive Date: 20130708
  Receipt Date: 20130708
  Transmission Date: 20140515
  Serious: Yes (Other)
  Sender: FDA-Public Use
  Company Number: CH-009507513-1307CHE002461

PATIENT
  Age: 54 Year
  Sex: Male
  Weight: 67 kg

DRUGS (3)
  1. JANUVIA [Suspect]
     Indication: DIABETES MELLITUS
     Dosage: 100 MG, ONCE DAILY
     Route: 048
     Dates: start: 201206
  2. TRAJENTA [Suspect]
     Indication: DIABETES MELLITUS
     Dosage: 5 MG, ONCE DAILY
     Route: 048
  3. SIMCORA [Concomitant]
     Route: 048

REACTIONS (1)
  - Visual impairment [Recovered/Resolved]
